FAERS Safety Report 23419300 (Version 2)
Quarter: 2024Q1

REPORT INFORMATION
  Report Type: Spontaneous
  Country: US (occurrence: US)
  Receive Date: 20240118
  Receipt Date: 20240221
  Transmission Date: 20240410
  Serious: Yes (Hospitalization, Other)
  Sender: FDA-Public Use
  Company Number: US-SANDOZ-SDZ2023US061358

PATIENT
  Sex: Female

DRUGS (1)
  1. ALBUTEROL SULFATE [Suspect]
     Active Substance: ALBUTEROL SULFATE
     Indication: Respiration abnormal
     Dosage: UNK
     Route: 065

REACTIONS (4)
  - Pneumothorax [Unknown]
  - Injury associated with device [Unknown]
  - Product dose omission issue [Unknown]
  - Device delivery system issue [Unknown]
